FAERS Safety Report 10099531 (Version 2)
Quarter: 2014Q2

REPORT INFORMATION
  Report Type: Spontaneous
  Country: TR (occurrence: TR)
  Receive Date: 20140423
  Receipt Date: 20140502
  Transmission Date: 20141212
  Serious: Yes (Hospitalization, Other)
  Sender: FDA-Public Use
  Company Number: TR-VERTEX PHARMACEUTICALS INC-2014-002015

PATIENT
  Sex: 0

DRUGS (4)
  1. INCIVO [Suspect]
     Indication: CHRONIC HEPATITIS C
     Dosage: UNK
     Route: 048
  2. RIBAVIRIN [Suspect]
     Indication: CHRONIC HEPATITIS C
     Dosage: UNK
  3. RIBAVIRIN [Suspect]
     Dosage: UNK
  4. PEGINTERFERON ALFA [Suspect]
     Indication: CHRONIC HEPATITIS C
     Dosage: UNK
     Route: 065

REACTIONS (7)
  - Nephropathy toxic [Recovered/Resolved]
  - Thrombocytopenia [Unknown]
  - Anaemia [Unknown]
  - Anorectal disorder [Recovered/Resolved]
  - Dysgeusia [Unknown]
  - Pruritus [Recovered/Resolved]
  - Rash [Recovered/Resolved]
